FAERS Safety Report 17220594 (Version 1)
Quarter: 2019Q4

REPORT INFORMATION
  Report Type: Spontaneous
  Country: US (occurrence: US)
  Receive Date: 20191231
  Receipt Date: 20191231
  Transmission Date: 20200122
  Serious: Yes (Hospitalization, Other)
  Sender: FDA-Public Use
  Company Number: US-GALDERMA-US19076765

PATIENT
  Age: 32 Year
  Sex: Female

DRUGS (2)
  1. DOXYCYCLINE. [Suspect]
     Active Substance: DOXYCYCLINE
     Indication: PROPHYLAXIS
     Route: 065
  2. IBUPROFEN. [Concomitant]
     Active Substance: IBUPROFEN
     Indication: MIGRAINE
     Dosage: OCCASIONALLY; AS NECESSARY
     Route: 065

REACTIONS (13)
  - Ovarian cyst [Recovering/Resolving]
  - Porphyria acute [Recovering/Resolving]
  - Nausea [Recovering/Resolving]
  - Generalised tonic-clonic seizure [Recovering/Resolving]
  - Chills [Recovering/Resolving]
  - Pyrexia [Recovering/Resolving]
  - Intentional product use issue [Recovered/Resolved]
  - Abdominal pain [Recovering/Resolving]
  - Decreased appetite [Recovering/Resolving]
  - Weight decreased [Recovering/Resolving]
  - Vomiting [Recovering/Resolving]
  - Confusional state [Recovering/Resolving]
  - Hypertension [Recovering/Resolving]
